FAERS Safety Report 15680076 (Version 1)
Quarter: 2018Q4

REPORT INFORMATION
  Report Type: Report from Study
  Country: None (occurrence: SI)
  Receive Date: 20181203
  Receipt Date: 20181203
  Transmission Date: 20190205
  Serious: Yes (Hospitalization, Disabling)
  Sender: FDA-Public Use
  Company Number: SI-ABBVIE-18P-261-2297414-00

PATIENT
  Age: 79 Year
  Sex: Female
  Weight: 47.8 kg

DRUGS (11)
  1. ASTONIN H [Concomitant]
     Indication: ORTHOSTATIC HYPOTENSION
     Route: 048
     Dates: start: 201709
  2. ASENTRA [Concomitant]
     Active Substance: SERTRALINE HYDROCHLORIDE
     Indication: ANXIETY
     Route: 048
     Dates: start: 201709
  3. DUODOPA [Suspect]
     Active Substance: CARBIDOPA\LEVODOPA
     Dosage: 3.4 ML/HOUR; CONTINUOUS
     Route: 050
     Dates: start: 20170905
  4. MIRAPEXIN [Concomitant]
     Active Substance: PRAMIPEXOLE
     Indication: PARKINSON^S DISEASE
     Route: 048
     Dates: start: 2015
  5. DUODOPA [Suspect]
     Active Substance: CARBIDOPA\LEVODOPA
     Indication: PARKINSON^S DISEASE
     Dosage: TITRATION
     Route: 050
     Dates: start: 20170904, end: 20170905
  6. FOLACIN [Concomitant]
     Indication: BLOOD FOLATE DECREASED
     Route: 048
     Dates: start: 201709
  7. VITAMIN B12 [Concomitant]
     Active Substance: CYANOCOBALAMIN
     Indication: PARKINSON^S DISEASE
     Dosage: 1 MG/ML Q.M.T.
     Route: 030
     Dates: start: 201709
  8. EXELON [Concomitant]
     Active Substance: RIVASTIGMINE TARTRATE
     Indication: PARKINSON^S DISEASE
     Dosage: 9.5 MG/HR
     Route: 062
     Dates: start: 201709
  9. SULFESA [Concomitant]
     Indication: INCONTINENCE
     Route: 048
     Dates: start: 201709
  10. MADOPAR [Concomitant]
     Active Substance: BENSERAZIDE HYDROCHLORIDE\LEVODOPA
     Indication: PARKINSON^S DISEASE
     Dosage: 200/50 MG (EVERY MORNING + EVERY EVENING BEFORE SLEEP)
     Route: 048
     Dates: start: 2014
  11. ENSURE PLUS ADVANCE [Concomitant]
     Indication: BODY MASS INDEX DECREASED
     Route: 048
     Dates: start: 201709

REACTIONS (2)
  - Urinary tract infection [Recovered/Resolved]
  - Stoma site inflammation [Recovered/Resolved]

NARRATIVE: CASE EVENT DATE: 20170906
